FAERS Safety Report 5678900-4 (Version None)
Quarter: 2008Q1

REPORT INFORMATION
  Report Type: 
  Country: None (occurrence: None)
  Receive Date: 20080325
  Receipt Date: 20080317
  Transmission Date: 20080703
  Serious: Yes (Death, Disabling)
  Sender: FDA-Public Use
  Company Number: PHEH2008US02041

PATIENT
  Age: 63 Year
  Sex: Female
  Weight: 63.038 kg

DRUGS (9)
  1. RECLAST [Suspect]
     Indication: OSTEOPOROSIS
     Dosage: 5 MG, ONCE YEARLY
     Dates: start: 20080204
  2. FUROSEMIDE [Concomitant]
     Dosage: 20 MG, QD
     Dates: start: 20080104
  3. ALPRAZOLAM [Concomitant]
     Dosage: 1 MG, QD
     Dates: start: 20071008
  4. CARBIDOPA/LEVODOPA ER [Concomitant]
     Dosage: 50-200 MG, QHS
     Dates: start: 20070604
  5. VERAPAMIL - SLOW RELEASE [Concomitant]
     Dosage: 240 MG, QD
     Dates: start: 20070508
  6. POTASSIUM CHLORIDE [Concomitant]
     Dosage: 750 MG, QD
     Dates: start: 20070508
  7. PHENERGAN HCL [Concomitant]
     Dosage: 25 MG, EVERY 4-6 HOURS PRN
     Route: 048
     Dates: start: 20070205
  8. ALBUTEROL SULFATE [Concomitant]
     Dosage: 0.083 %, FOUR TIMES DAILY AS NEEDED
     Dates: start: 20040524
  9. ASPIRIN PLUS STOMACH GUARD [Concomitant]
     Dosage: 325-75-75-71 MG, QD
     Dates: start: 20020109

REACTIONS (6)
  - ARTHRALGIA [None]
  - CARDIAC ARREST [None]
  - DIZZINESS [None]
  - GAIT DISTURBANCE [None]
  - MYALGIA [None]
  - MYOCARDIAL INFARCTION [None]
